FAERS Safety Report 10081113 (Version 1)
Quarter: 2014Q2

REPORT INFORMATION
  Report Type: Spontaneous
  Country: IN (occurrence: IN)
  Receive Date: 20140416
  Receipt Date: 20140416
  Transmission Date: 20141212
  Serious: Yes (Death)
  Sender: FDA-Public Use
  Company Number: IN-MYLANLABS-2014S1007888

PATIENT
  Age: 63 Year
  Sex: Female

DRUGS (5)
  1. DOCETAXEL [Suspect]
     Indication: CHEMOTHERAPY
     Dosage: 6 CYCLES
     Route: 065
     Dates: start: 201209, end: 201212
  2. PACLITAXEL [Suspect]
     Indication: CHEMOTHERAPY
     Dosage: WEEKLY
     Route: 065
  3. CISPLATIN [Concomitant]
     Indication: CHEMOTHERAPY
     Dosage: 6 CYCLES
     Route: 065
     Dates: start: 201209, end: 201212
  4. FLUOROURACIL [Concomitant]
     Indication: CHEMOTHERAPY
     Dosage: 6 CYCLES
     Route: 065
     Dates: start: 201209, end: 201212
  5. CARBOPLATIN [Concomitant]
     Indication: CHEMOTHERAPY
     Dosage: WEEKLY
     Route: 065

REACTIONS (1)
  - Pneumonitis [Fatal]
